FAERS Safety Report 8138090-5 (Version None)
Quarter: 2012Q1

REPORT INFORMATION
  Report Type: 
  Country: None (occurrence: None)
  Receive Date: 20120103
  Receipt Date: 20110913
  Transmission Date: 20120608
  Serious: No
  Sender: FDA-Public Use
  Company Number: AE-2011-001518

PATIENT
  Age: 54 Year
  Sex: Male
  Weight: 109.3169 kg

DRUGS (12)
  1. INCIVEK [Suspect]
     Dosage: 2250 MG(750 MG, 3 IN 1 D)
     Dates: start: 20110828
  2. OXYCODONE HCL [Concomitant]
  3. XIFAXAN (RIVAXIMIN) [Concomitant]
  4. MIRTAZAPINE [Concomitant]
  5. MORPHINE [Concomitant]
  6. RIBAVIRIN [Concomitant]
  7. HYDROXYZINE [Concomitant]
  8. ENALAPRIL MALEATE [Concomitant]
  9. OMEPRAZOLE [Concomitant]
  10. FUROSEMIDE [Concomitant]
  11. LANTUS [Concomitant]
  12. PEGASYS [Concomitant]

REACTIONS (1)
  - DEPRESSED MOOD [None]
